FAERS Safety Report 8509921-1 (Version None)
Quarter: 2012Q3

REPORT INFORMATION
  Report Type: 
  Country: None (occurrence: None)
  Receive Date: 20120713
  Receipt Date: 20120709
  Transmission Date: 20120928
  Serious: Yes (Death)
  Sender: FDA-Public Use
  Company Number: JP-JNJFOC-20120700252

PATIENT
  Sex: Female
  Weight: 26.31 kg

DRUGS (2)
  1. PAZUCROSS [Concomitant]
     Indication: PNEUMONIA
     Route: 065
     Dates: start: 20111210, end: 20111213
  2. GALANTAMINE HYDROBROMIDE [Suspect]
     Indication: DEMENTIA ALZHEIMER'S TYPE
     Route: 048
     Dates: start: 20111207, end: 20111214

REACTIONS (1)
  - PNEUMONIA [None]
